FAERS Safety Report 6369870-4 (Version None)
Quarter: 2009Q3

REPORT INFORMATION
  Report Type: 
  Country: None (occurrence: None)
  Receive Date: 20090923
  Receipt Date: 20080619
  Transmission Date: 20100115
  Serious: No
  Sender: FDA-Public Use
  Company Number: US-ASTRAZENECA-2006UW11391

PATIENT
  Age: 47 Year
  Sex: Female
  Weight: 71.2 kg

DRUGS (25)
  1. SEROQUEL [Suspect]
     Indication: DEPRESSION
     Dosage: 100MG - 600MG
     Route: 048
     Dates: start: 20041216
  2. SEROQUEL [Suspect]
     Indication: DISSOCIATIVE IDENTITY DISORDER
     Dosage: 100MG - 600MG
     Route: 048
     Dates: start: 20041216
  3. SEROQUEL [Suspect]
     Route: 048
     Dates: end: 20070101
  4. SEROQUEL [Suspect]
     Route: 048
     Dates: end: 20070101
  5. ZOCOR [Concomitant]
     Dates: start: 20041020
  6. CRESTOR [Concomitant]
  7. GLUCOTROL XL [Concomitant]
     Route: 048
     Dates: start: 20060413
  8. LIPITOR [Concomitant]
     Route: 048
  9. GABAPENTIN [Concomitant]
  10. TRICOR [Concomitant]
     Route: 048
     Dates: start: 20060515
  11. ZETIA [Concomitant]
     Route: 048
  12. GEODON [Concomitant]
     Route: 048
  13. TOPROL-XL [Concomitant]
     Dosage: 100 MG TWO TABLETS DAILY
     Route: 048
  14. DIAZEPAM [Concomitant]
  15. NORVASC [Concomitant]
     Route: 048
     Dates: start: 20060621
  16. CLONIDINE [Concomitant]
     Route: 048
  17. TRAZODONE [Concomitant]
  18. AMBIEN [Concomitant]
     Route: 048
     Dates: start: 20060705
  19. VYTORIN [Concomitant]
     Dosage: 10MG - 80MG DAILY
     Route: 048
     Dates: start: 20041216
  20. SONATA [Concomitant]
     Route: 048
     Dates: start: 20060404
  21. CLOPIDOGREL [Concomitant]
  22. VALTREX [Concomitant]
     Route: 048
     Dates: start: 20050623
  23. AMITRIPTYLINE [Concomitant]
  24. ASPIRIN [Concomitant]
     Route: 048
     Dates: start: 20041229
  25. IMDUR [Concomitant]
     Route: 048
     Dates: start: 20041216

REACTIONS (4)
  - BLOOD CHOLESTEROL INCREASED [None]
  - BLOOD TRIGLYCERIDES INCREASED [None]
  - DIABETES MELLITUS [None]
  - DYSLIPIDAEMIA [None]
